FAERS Safety Report 10880889 (Version 1)
Quarter: 2015Q1

REPORT INFORMATION
  Report Type: Spontaneous
  Country: JP (occurrence: None)
  Receive Date: 20150225
  Receipt Date: 20150225
  Transmission Date: 20150721
  Serious: Yes (Disabling)
  Sender: FDA-Public Use
  Company Number: PR 4740

PATIENT
  Age: 66 Year
  Sex: Male

DRUGS (2)
  1. TIMOPTOL 0.5% (TIMOLOL MALEATE) [Concomitant]
  2. ZIOPTAN [Suspect]
     Active Substance: TAFLUPROST
     Indication: GLAUCOMA
     Dosage: 1 GTT, QD, OS
     Dates: start: 20130828, end: 20131011

REACTIONS (3)
  - Cystoid macular oedema [None]
  - Macular hole [None]
  - Visual acuity reduced [None]

NARRATIVE: CASE EVENT DATE: 20131011
